FAERS Safety Report 18851955 (Version 1)
Quarter: 2021Q1

REPORT INFORMATION
  Report Type: Spontaneous
  Country: IT (occurrence: IT)
  Receive Date: 20210205
  Receipt Date: 20210205
  Transmission Date: 20210420
  Serious: Yes (Other)
  Sender: FDA-Public Use
  Company Number: IT-MYLANLABS-2021M1007377

PATIENT
  Age: 72 Year
  Sex: Male

DRUGS (1)
  1. DICLOFENAC [Suspect]
     Active Substance: DICLOFENAC
     Indication: NEURALGIA
     Dosage: 25 MILLIGRAM, QID
     Route: 048

REACTIONS (1)
  - Treatment failure [Unknown]
